FAERS Safety Report 19706448 (Version 1)
Quarter: 2021Q3

REPORT INFORMATION
  Report Type: Spontaneous
  Country: US (occurrence: US)
  Receive Date: 20210816
  Receipt Date: 20210816
  Transmission Date: 20211014
  Serious: Yes (Death)
  Sender: FDA-Public Use
  Company Number: None

PATIENT
  Age: 75 Year
  Sex: Male

DRUGS (2)
  1. TOCILIZUMAB (TOCILIZUMAB 20MG/ML INJ, SOLN , 20ML) [Suspect]
     Active Substance: TOCILIZUMAB
     Indication: UPPER RESPIRATORY TRACT INFECTION
     Route: 042
     Dates: start: 20210725, end: 20210727
  2. TOCILIZUMAB (TOCILIZUMAB 20MG/ML INJ, SOLN , 10ML) [Suspect]
     Active Substance: TOCILIZUMAB
     Indication: UPPER RESPIRATORY TRACT INFECTION
     Route: 042
     Dates: start: 20210727, end: 20210727

REACTIONS (3)
  - COVID-19 pneumonia [None]
  - Acute respiratory failure [None]
  - Respiratory depression [None]

NARRATIVE: CASE EVENT DATE: 20210810
